FAERS Safety Report 7624729-7 (Version None)
Quarter: 2011Q3

REPORT INFORMATION
  Report Type: 
  Country: None (occurrence: None)
  Receive Date: 20110720
  Receipt Date: 20110706
  Transmission Date: 20111222
  Serious: Yes (Other)
  Sender: FDA-Public Use
  Company Number: CA-UCBSA-034438

PATIENT
  Sex: Female
  Weight: 41 kg

DRUGS (8)
  1. CIMZIA [Suspect]
     Indication: RHEUMATOID ARTHRITIS
     Route: 058
     Dates: start: 20100629
  2. PREDNISONE [Concomitant]
     Indication: RHEUMATOID ARTHRITIS
     Dosage: MG
     Route: 048
     Dates: start: 20091028
  3. ATENOLOL [Concomitant]
     Route: 048
  4. NIFEDIPINE [Concomitant]
  5. IBUPROFEN (ADVIL) [Concomitant]
     Route: 048
  6. PLAQUENIL [Concomitant]
     Indication: RHEUMATOID ARTHRITIS
     Route: 048
     Dates: start: 20080101
  7. CA WITH VIT. D [Concomitant]
     Route: 048
  8. RAMIPRIL [Concomitant]

REACTIONS (3)
  - CHEILITIS [None]
  - ORAL FUNGAL INFECTION [None]
  - RASH [None]
